FAERS Safety Report 5490625-7 (Version None)
Quarter: 2007Q4

REPORT INFORMATION
  Report Type: 
  Country: None (occurrence: None)
  Receive Date: 20071019
  Receipt Date: 20071010
  Transmission Date: 20080405
  Serious: Yes (Hospitalization)
  Sender: FDA-Public Use
  Company Number: US-JNJFOC-20071003051

PATIENT
  Sex: Female

DRUGS (2)
  1. INFLIXIMAB [Suspect]
     Indication: ARTHRITIS
     Route: 042
  2. METHOTREXATE [Suspect]
     Indication: ARTHRITIS

REACTIONS (1)
  - COCCIDIOIDOMYCOSIS [None]
